FAERS Safety Report 21667137 (Version 2)
Quarter: 2022Q4

REPORT INFORMATION
  Report Type: Spontaneous
  Country: JP (occurrence: JP)
  Receive Date: 20221201
  Receipt Date: 20221206
  Transmission Date: 20230112
  Serious: No
  Sender: FDA-Public Use
  Company Number: JP-BAUSCH-BL-2022-026409

PATIENT
  Sex: Male

DRUGS (1)
  1. EFINACONAZOLE [Suspect]
     Active Substance: EFINACONAZOLE
     Indication: Product used for unknown indication
     Route: 061

REACTIONS (2)
  - Renal impairment [Unknown]
  - Therapeutic response decreased [Unknown]
